FAERS Safety Report 5567671-8 (Version None)
Quarter: 2007Q4

REPORT INFORMATION
  Report Type: 
  Country: None (occurrence: None)
  Receive Date: 20071217
  Receipt Date: 20071128
  Transmission Date: 20080405
  Serious: No
  Sender: FDA-Public Use
  Company Number: ADE# 07-029

PATIENT
  Sex: Male
  Weight: 66.2252 kg

DRUGS (3)
  1. TRAMADOL HCL AND ACETAMINOPHEN TABLETS, 37.5/325MG [Suspect]
     Indication: SURGERY
     Dosage: 1/2 TABLET AT BEDTIME
     Dates: start: 20071126, end: 20071127
  2. CALCIUM [Concomitant]
  3. MULTIPLE VITAMINS + VITAMIN B [Concomitant]

REACTIONS (3)
  - DRUG INEFFECTIVE [None]
  - INSOMNIA [None]
  - PAIN [None]
